FAERS Safety Report 7499941-0 (Version None)
Quarter: 2011Q2

REPORT INFORMATION
  Report Type: 
  Country: None (occurrence: None)
  Receive Date: 20110524
  Receipt Date: 20110314
  Transmission Date: 20111010
  Serious: No
  Sender: FDA-Public Use
  Company Number: US-NOVEN-11US001993

PATIENT
  Sex: Male
  Weight: 36.735 kg

DRUGS (6)
  1. RITALIN [Concomitant]
     Indication: ATTENTION DEFICIT/HYPERACTIVITY DISORDER
     Dosage: 5 MG, AT 1330 AND 1730
     Route: 048
     Dates: start: 20110305
  2. RISPERIDONE [Concomitant]
     Dosage: 1 TAB QHS
     Route: 048
     Dates: start: 20100101
  3. TENEX [Concomitant]
     Dosage: 1 MG, QHS
     Dates: start: 20100501
  4. RISPERIDONE [Concomitant]
     Indication: OPPOSITIONAL DEFIANT DISORDER
     Dosage: 0.25, 2 TABS IN AM
     Route: 048
     Dates: start: 20100101
  5. TENEX [Concomitant]
     Indication: ATTENTION DEFICIT/HYPERACTIVITY DISORDER
     Dosage: 0.5 MG, MORNING
     Route: 048
     Dates: start: 20100501
  6. DAYTRANA [Suspect]
     Indication: ATTENTION DEFICIT/HYPERACTIVITY DISORDER
     Dosage: 10 MG, QD
     Route: 062
     Dates: start: 20110305

REACTIONS (4)
  - PRODUCT QUALITY ISSUE [None]
  - INCORRECT DOSE ADMINISTERED [None]
  - DRUG ADMINISTRATION ERROR [None]
  - DRUG INEFFECTIVE [None]
